FAERS Safety Report 6642725-3 (Version None)
Quarter: 2010Q1

REPORT INFORMATION
  Report Type: 
  Country: None (occurrence: None)
  Receive Date: 20100319
  Receipt Date: 20100309
  Transmission Date: 20100710
  Serious: Yes (Other)
  Sender: FDA-Public Use
  Company Number: US-PFIZER INC-2010026632

PATIENT
  Age: 88 Year
  Sex: Female

DRUGS (1)
  1. NEURONTIN [Suspect]
     Dosage: UNK MG, UNK
     Route: 048
     Dates: start: 20060101

REACTIONS (13)
  - BACK PAIN [None]
  - DRUG INTOLERANCE [None]
  - EXPIRED DRUG ADMINISTERED [None]
  - FOOT DEFORMITY [None]
  - HEADACHE [None]
  - HYPERSENSITIVITY [None]
  - OSTEOARTHRITIS [None]
  - PAIN IN EXTREMITY [None]
  - PRURITUS [None]
  - SOMNOLENCE [None]
  - SPINAL FRACTURE [None]
  - SWELLING [None]
  - TREMOR [None]
